FAERS Safety Report 13535147 (Version 1)
Quarter: 2017Q2

REPORT INFORMATION
  Report Type: Spontaneous
  Country: US (occurrence: US)
  Receive Date: 20170510
  Receipt Date: 20170510
  Transmission Date: 20170830
  Serious: Yes (Hospitalization)
  Sender: FDA-Public Use
  Company Number: None

PATIENT
  Age: 22 Year
  Sex: Male
  Weight: 68 kg

DRUGS (11)
  1. ONDANSETRON [Concomitant]
     Active Substance: ONDANSETRON
  2. ESCITALOPRAM [Concomitant]
     Active Substance: ESCITALOPRAM OXALATE
  3. HYDROXYZINE [Concomitant]
     Active Substance: HYDROXYZINE HYDROCHLORIDE
  4. LITHIUM. [Concomitant]
     Active Substance: LITHIUM
  5. LORAZEPAM. [Concomitant]
     Active Substance: LORAZEPAM
  6. ACETAMINOPHEN. [Concomitant]
     Active Substance: ACETAMINOPHEN
  7. RISPERIDONE. [Concomitant]
     Active Substance: RISPERIDONE
  8. ALUMINUM/MAGNESIUM/SIMETHICONE [Concomitant]
  9. CLOZAPINE. [Suspect]
     Active Substance: CLOZAPINE
     Indication: PSYCHOTIC DISORDER
     Route: 048
     Dates: start: 20170215, end: 20170306
  10. PROPRANOLOL [Concomitant]
     Active Substance: PROPRANOLOL HYDROCHLORIDE
  11. HALOPERIDOL. [Concomitant]
     Active Substance: HALOPERIDOL

REACTIONS (3)
  - Diarrhoea [None]
  - Procalcitonin abnormal [None]
  - Eosinophilia [None]

NARRATIVE: CASE EVENT DATE: 20170306
